FAERS Safety Report 20719334 (Version 3)
Quarter: 2022Q3

REPORT INFORMATION
  Report Type: Spontaneous
  Country: JP (occurrence: JP)
  Receive Date: 20220418
  Receipt Date: 20220826
  Transmission Date: 20221027
  Serious: Yes (Other)
  Sender: FDA-Public Use
  Company Number: JP-GLAXOSMITHKLINE-JP2022JPN064362

PATIENT

DRUGS (1)
  1. SOTROVIMAB [Suspect]
     Active Substance: SOTROVIMAB
     Indication: COVID-19
     Dosage: 500 MG/ 100 ML/ 30 MIN
     Dates: start: 20220412, end: 20220412

REACTIONS (4)
  - Anaphylactoid reaction [Recovered/Resolved]
  - Abdominal pain upper [Recovering/Resolving]
  - Defaecation urgency [Recovered/Resolved]
  - Restlessness [Recovered/Resolved]

NARRATIVE: CASE EVENT DATE: 20220412
